FAERS Safety Report 26071222 (Version 1)
Quarter: 2025Q4

REPORT INFORMATION
  Report Type: Report from Study
  Country: US (occurrence: US)
  Receive Date: 20251120
  Receipt Date: 20251120
  Transmission Date: 20260118
  Serious: No
  Sender: MALLINCKRODT
  Company Number: US-MALLINCKRODT-MNK202507106

PATIENT
  Age: 54 Year
  Sex: Female

DRUGS (4)
  1. CORTICOTROPIN [Suspect]
     Active Substance: CORTICOTROPIN
     Indication: Pulmonary sarcoidosis
     Route: 058
  2. CORTICOTROPIN [Suspect]
     Active Substance: CORTICOTROPIN
     Indication: Sarcoidosis
  3. PREDNISONE [Concomitant]
     Active Substance: PREDNISONE
     Dosage: UNKNOWN
  4. PREDNISONE [Concomitant]
     Active Substance: PREDNISONE
     Dosage: UNKNOWN, TAPERING

REACTIONS (1)
  - Hepatic enzyme increased [Unknown]
